FAERS Safety Report 8953410 (Version 1)
Quarter: 2012Q4

REPORT INFORMATION
  Report Type: 
  Country: IT (occurrence: IT)
  Receive Date: 20121206
  Receipt Date: 20121206
  Transmission Date: 20130627
  Serious: Yes (Hospitalization)
  Sender: FDA-Public Use
  Company Number: IT-MYLANLABS-2012S1024373

PATIENT
  Age: 23 Year
  Sex: Female

DRUGS (2)
  1. PAROXETINE [Suspect]
     Indication: PRODUCT USED FOR UNKNOWN INDICATION
     Route: 048
     Dates: start: 20121105, end: 20121105
  2. ALPRAZOLAM [Suspect]
     Indication: DEPRESSION
     Route: 048
     Dates: start: 20121105, end: 20121105

REACTIONS (2)
  - Depression [Recovered/Resolved]
  - Substance abuse [Recovered/Resolved]
